FAERS Safety Report 16564821 (Version 1)
Quarter: 2019Q3

REPORT INFORMATION
  Report Type: Report from Study
  Country: None (occurrence: CA)
  Receive Date: 20190712
  Receipt Date: 20190712
  Transmission Date: 20191004
  Serious: Yes (Other)
  Sender: FDA-Public Use
  Company Number: CA-ABBVIE-18K-028-2391782-00

PATIENT
  Sex: Female

DRUGS (4)
  1. COLESTID [Suspect]
     Active Substance: COLESTIPOL HYDROCHLORIDE
     Indication: IRRITABLE BOWEL SYNDROME
     Dosage: 8 TABLETS
     Route: 048
     Dates: start: 2018
  2. ALOSETRON [Concomitant]
     Active Substance: ALOSETRON
     Indication: IRRITABLE BOWEL SYNDROME
     Route: 048
     Dates: end: 2018
  3. HUMIRA [Suspect]
     Active Substance: ADALIMUMAB
     Indication: CROHN^S DISEASE
     Route: 058
     Dates: start: 20160920
  4. GABAPENTIN. [Suspect]
     Active Substance: GABAPENTIN
     Indication: TRIGEMINAL NEURALGIA
     Dosage: 3 TIMES
     Route: 048

REACTIONS (15)
  - Surgery [Unknown]
  - Mouth ulceration [Unknown]
  - Irritable bowel syndrome [Not Recovered/Not Resolved]
  - Oral mucosal blistering [Unknown]
  - Blister [Unknown]
  - Erythema [Not Recovered/Not Resolved]
  - Trigeminal neuralgia [Unknown]
  - Blister [Not Recovered/Not Resolved]
  - Fatigue [Not Recovered/Not Resolved]
  - Oral disorder [Not Recovered/Not Resolved]
  - Decreased appetite [Not Recovered/Not Resolved]
  - Immune system disorder [Unknown]
  - Injection site bruising [Not Recovered/Not Resolved]
  - Injection site erythema [Not Recovered/Not Resolved]
  - Nausea [Unknown]

NARRATIVE: CASE EVENT DATE: 2018
